FAERS Safety Report 20429833 (Version 1)
Quarter: 2022Q1

REPORT INFORMATION
  Report Type: Spontaneous
  Country: IL (occurrence: None)
  Receive Date: 20220204
  Receipt Date: 20220204
  Transmission Date: 20220423
  Serious: Yes (Death, Other)
  Sender: FDA-Public Use
  Company Number: IL-ROCHE-3009635

PATIENT
  Age: 65 Year
  Sex: Female

DRUGS (1)
  1. PRALSETINIB [Suspect]
     Active Substance: PRALSETINIB
     Indication: Product used for unknown indication
     Route: 048
     Dates: start: 201107, end: 201112

REACTIONS (2)
  - Disease progression [Fatal]
  - Ascites [Unknown]
